FAERS Safety Report 9768193 (Version 2)
Quarter: 2013Q4

REPORT INFORMATION
  Report Type: Spontaneous
  Country: ES (occurrence: ES)
  Receive Date: 20131217
  Receipt Date: 20131230
  Transmission Date: 20140711
  Serious: Yes (Other)
  Sender: FDA-Public Use
  Company Number: ES-GLAXOSMITHKLINE-B0952910A

PATIENT
  Age: 71 Year
  Sex: Male

DRUGS (3)
  1. VOTRIENT [Suspect]
     Indication: RENAL CANCER METASTATIC
     Route: 048
     Dates: start: 201311, end: 20131205
  2. CANDESARTAN CILEXETIL + HYDROCHLOROTHIAZIDE [Concomitant]
     Indication: HYPERTENSION
  3. MEGEFREN [Concomitant]
     Indication: DECREASED APPETITE

REACTIONS (1)
  - Blindness unilateral [Recovered/Resolved]
